FAERS Safety Report 19665079 (Version 1)
Quarter: 2021Q3

REPORT INFORMATION
  Report Type: Spontaneous
  Country: DE (occurrence: DE)
  Receive Date: 20210806
  Receipt Date: 20210806
  Transmission Date: 20211014
  Serious: Yes (Other)
  Sender: FDA-Public Use
  Company Number: DE-CELLTRION INC.-2021DE010184

PATIENT

DRUGS (1)
  1. RITUXIMAB (UNKNOWN) [Suspect]
     Active Substance: RITUXIMAB
     Indication: OCULAR LYMPHOMA
     Dosage: (DOSAGE FORM: INJECTION)1 GM IN 0.1 ML
     Route: 050

REACTIONS (3)
  - Cataract [Unknown]
  - Off label use [Unknown]
  - Incorrect product dosage form administered [Unknown]
